FAERS Safety Report 5678274-9 (Version None)
Quarter: 2008Q1

REPORT INFORMATION
  Report Type: 
  Country: None (occurrence: None)
  Receive Date: 20080324
  Receipt Date: 20080324
  Transmission Date: 20080703
  Serious: No
  Sender: FDA-Public Use
  Company Number: None

PATIENT
  Age: 53 Year
  Sex: Female
  Weight: 70.3075 kg

DRUGS (1)
  1. FLAGYL [Suspect]
     Indication: LOCALISED INFECTION
     Dosage: 3 X A DAY PO
     Route: 048
     Dates: start: 20080316, end: 20080319

REACTIONS (5)
  - ANXIETY [None]
  - CHILLS [None]
  - HYPERHIDROSIS [None]
  - PAIN [None]
  - PANIC ATTACK [None]
